FAERS Safety Report 9159470 (Version 1)
Quarter: 2013Q1

REPORT INFORMATION
  Report Type: Spontaneous
  Country: US (occurrence: None)
  Receive Date: 20130312
  Receipt Date: 20130312
  Transmission Date: 20140127
  Serious: Yes (Other)
  Sender: FDA-Public Use
  Company Number: None

PATIENT
  Age: 53 Year
  Sex: Female
  Weight: 140.62 kg

DRUGS (2)
  1. TOPIRAMATE [Suspect]
     Indication: SPINAL OSTEOARTHRITIS
     Route: 048
  2. TOPIRAMATE [Suspect]
     Indication: SOMATOFORM DISORDER
     Route: 048

REACTIONS (4)
  - Gastrointestinal disorder [None]
  - Flatulence [None]
  - Dyspepsia [None]
  - Discomfort [None]
